FAERS Safety Report 20084212 (Version 1)
Quarter: 2021Q4

REPORT INFORMATION
  Report Type: Spontaneous
  Country: DE (occurrence: DE)
  Receive Date: 20211118
  Receipt Date: 20211118
  Transmission Date: 20220303
  Serious: Yes (Hospitalization)
  Sender: FDA-Public Use
  Company Number: DE-TEVA-2021-DE-1977547

PATIENT
  Age: 80 Year
  Sex: Female

DRUGS (11)
  1. CLOZAPINE [Suspect]
     Active Substance: CLOZAPINE
     Indication: Drug therapy
     Route: 065
  2. CLOPIDOGREL [Concomitant]
     Active Substance: CLOPIDOGREL BISULFATE
     Indication: Peripheral arterial occlusive disease
     Dosage: 75 MILLIGRAM DAILY;
     Route: 065
  3. CLOPIDOGREL [Concomitant]
     Active Substance: CLOPIDOGREL BISULFATE
     Indication: Atrial fibrillation
  4. RAMIPRIL [Concomitant]
     Active Substance: RAMIPRIL
     Indication: Hypertension
     Dosage: 10 MILLIGRAM DAILY;
     Route: 065
  5. AMLODIPINE [Concomitant]
     Active Substance: AMLODIPINE BESYLATE
     Indication: Hypertension
     Dosage: 10 MILLIGRAM DAILY;
     Route: 065
  6. Metoprolol extended release (ER) [Concomitant]
     Indication: Hypertension
     Dosage: 95 MILLIGRAM DAILY; FORMULATION: EXTENDED RELEASE
     Route: 065
  7. Urapidil ER [Concomitant]
     Indication: Hypertension
     Dosage: 60 MILLIGRAM DAILY; EXTENDED RELEASED
     Route: 065
  8. METFORMIN [Concomitant]
     Active Substance: METFORMIN HYDROCHLORIDE
     Indication: Type 2 diabetes mellitus
     Dosage: 2000 MILLIGRAM DAILY;
     Route: 065
  9. SIMVASTATIN [Concomitant]
     Active Substance: SIMVASTATIN
     Indication: Peripheral arterial occlusive disease
     Dosage: 20 MILLIGRAM DAILY;
     Route: 065
  10. MELPERONE [Concomitant]
     Active Substance: MELPERONE
     Indication: Major depression
     Dosage: 50 MILLIGRAM DAILY;
     Route: 065
  11. LANTUS [Concomitant]
     Active Substance: INSULIN GLARGINE
     Indication: Type 2 diabetes mellitus
     Dosage: 4 DOSAGE FORMS DAILY;
     Route: 058

REACTIONS (4)
  - Wrong product administered [Recovered/Resolved]
  - Loss of consciousness [Recovered/Resolved]
  - Product dispensing error [Recovered/Resolved]
  - Procalcitonin increased [Recovering/Resolving]
